FAERS Safety Report 10516144 (Version 1)
Quarter: 2014Q3

REPORT INFORMATION
  Report Type: Spontaneous
  Country: US (occurrence: None)
  Receive Date: 20140926
  Receipt Date: 20140926
  Transmission Date: 20150326
  Serious: No
  Sender: FDA-Public Use
  Company Number: 1000068054

PATIENT
  Age: 95 Year
  Sex: Male

DRUGS (6)
  1. GAS PILL NOS [Concomitant]
  2. LINZESS [Suspect]
     Active Substance: LINACLOTIDE
     Indication: CONSTIPATION
     Route: 048
     Dates: start: 201405
  3. ALLOPURINOL. [Concomitant]
     Active Substance: ALLOPURINOL
  4. HEART PILLS NOS [Concomitant]
  5. MELOXICAM. [Concomitant]
     Active Substance: MELOXICAM
  6. FENTANYL. [Concomitant]
     Active Substance: FENTANYL

REACTIONS (2)
  - Diarrhoea [None]
  - Flatulence [None]

NARRATIVE: CASE EVENT DATE: 201405
